FAERS Safety Report 4804511-6 (Version None)
Quarter: 2005Q4

REPORT INFORMATION
  Report Type: 
  Country: None (occurrence: None)
  Receive Date: 20051017
  Receipt Date: 20050926
  Transmission Date: 20060501
  Serious: Yes (Hospitalization)
  Sender: FDA-Public Use
  Company Number: 6017513

PATIENT
  Age: 64 Year
  Sex: Male

DRUGS (6)
  1. CARDENSIEL (FILM-COATED TABLET) (BISOPROLOL) [Suspect]
     Dosage: 5 MG (5 MG, 1 D) ORAL
     Route: 048
     Dates: start: 20050602, end: 20050614
  2. DIAMICRON (GLICLAZIDE) [Concomitant]
  3. FUROSEMIDE [Concomitant]
  4. ENALAPRIL MALEATE [Concomitant]
  5. XATRAL (ALFUZOSIN) [Concomitant]
  6. LODALES(FILM COATED TABLET, SIMVASTATIN) [Suspect]
     Dosage: 40 MG, 1 D  ORAL
     Route: 048

REACTIONS (15)
  - ANTI-HBS ANTIBODY POSITIVE [None]
  - AORTIC ARTERIOSCLEROSIS [None]
  - BACTERIAL INFECTION [None]
  - GENERAL PHYSICAL HEALTH DETERIORATION [None]
  - HEPATIC FIBROSIS [None]
  - HEPATIC NECROSIS [None]
  - HEPATITIS FULMINANT [None]
  - HYPOCAPNIA [None]
  - HYPOXIA [None]
  - ISCHAEMIC HEPATITIS [None]
  - LEUKOCYTOSIS [None]
  - LUNG DISORDER [None]
  - PLEURAL EFFUSION [None]
  - RHABDOMYOLYSIS [None]
  - WEIGHT DECREASED [None]
